FAERS Safety Report 23098045 (Version 3)
Quarter: 2025Q3

REPORT INFORMATION
  Report Type: Spontaneous
  Country: US (occurrence: US)
  Receive Date: 20231023
  Receipt Date: 20250729
  Transmission Date: 20251020
  Serious: Yes (Hospitalization, Other)
  Sender: BIOMARIN
  Company Number: US-SA-SAC20231012000746

PATIENT
  Age: 23 Year
  Sex: Male

DRUGS (1)
  1. LARONIDASE [Suspect]
     Active Substance: LARONIDASE
     Indication: Mucopolysaccharidosis I
     Dosage: 46.4 (UNITS NOT KNOWN), QW
     Dates: start: 20070808

REACTIONS (3)
  - Psychiatric symptom [Recovering/Resolving]
  - Hallucination, auditory [Recovering/Resolving]
  - Psychotic disorder [Recovering/Resolving]
